FAERS Safety Report 9427626 (Version 1)
Quarter: 2013Q3

REPORT INFORMATION
  Report Type: Report from Study
  Country: US (occurrence: US)
  Receive Date: 20130730
  Receipt Date: 20130730
  Transmission Date: 20140515
  Serious: No
  Sender: FDA-Public Use
  Company Number: US-ABBOTT-12P-163-0967499-00

PATIENT
  Age: 68 Year
  Sex: Male
  Weight: 136.2 kg

DRUGS (4)
  1. NIASPAN (COATED) 500MG [Suspect]
     Indication: LOW DENSITY LIPOPROTEIN DECREASED
     Dosage: DID NOT KNOW THE DOSE HE WAS TAKING
     Dates: start: 20120812
  2. UNKNOWN ANTIHISTAMINE [Concomitant]
     Indication: PRODUCT USED FOR UNKNOWN INDICATION
  3. BABY ASA [Concomitant]
     Indication: PRODUCT USED FOR UNKNOWN INDICATION
     Dosage: WITH NIASPAN COATED
  4. 12 TO 15 OTHER UNKNOWN MEDICATIONS [Concomitant]
     Indication: PRODUCT USED FOR UNKNOWN INDICATION

REACTIONS (1)
  - Hot flush [Not Recovered/Not Resolved]
